FAERS Safety Report 18932740 (Version 1)
Quarter: 2021Q1

REPORT INFORMATION
  Report Type: Spontaneous
  Country: US (occurrence: US)
  Receive Date: 20210223
  Receipt Date: 20210223
  Transmission Date: 20210420
  Serious: No
  Sender: FDA-Public Use
  Company Number: None

PATIENT
  Age: 79 Year
  Sex: Female

DRUGS (5)
  1. OMEPRAZOLE 10MG [Concomitant]
     Active Substance: OMEPRAZOLE
     Dates: start: 20111001
  2. ACYCLOVIR 400MG [Concomitant]
     Active Substance: ACYCLOVIR
     Dates: start: 20110318
  3. MIRTAZAPINE 15MG [Concomitant]
     Active Substance: MIRTAZAPINE
     Dates: start: 20201218
  4. REVLIMID [Suspect]
     Active Substance: LENALIDOMIDE
     Indication: PLASMA CELL MYELOMA
     Route: 048
     Dates: start: 20201218
  5. DEXAMETHASONE 4MG [Concomitant]
     Active Substance: DEXAMETHASONE
     Dates: start: 20201218

REACTIONS (3)
  - Diarrhoea [None]
  - Constipation [None]
  - Therapy interrupted [None]

NARRATIVE: CASE EVENT DATE: 20210214
